FAERS Safety Report 16027046 (Version 1)
Quarter: 2019Q1

REPORT INFORMATION
  Report Type: Spontaneous
  Country: US (occurrence: US)
  Receive Date: 20190303
  Receipt Date: 20190303
  Transmission Date: 20190418
  Serious: No
  Sender: FDA-Public Use
  Company Number: US-IMPAX LABORATORIES, LLC-2018-IPXL-00582

PATIENT
  Age: 62 Year
  Sex: Male
  Weight: 59 kg

DRUGS (3)
  1. RYTARY [Suspect]
     Active Substance: CARBIDOPA\LEVODOPA
     Indication: PARKINSON^S DISEASE
     Dosage: 48.75MG/195MG 1 CAPSULE EVERY 6 HOURS
     Route: 048
     Dates: start: 201801, end: 20180213
  2. ADVIL (MEFENAMIC ACID) [Concomitant]
     Active Substance: MEFENAMIC ACID
     Indication: PRODUCT USED FOR UNKNOWN INDICATION
     Dosage: UNK
     Route: 065
  3. RYTARY [Suspect]
     Active Substance: CARBIDOPA\LEVODOPA
     Dosage: 61.25MG/245MG 1 CAPSULE 4 TO 5 TIMES DAILY TOGETHER WITH 48.75MG/195MG 1 CAPSULE 4 TO 5 TIMES DAILY
     Route: 048
     Dates: start: 20180213

REACTIONS (2)
  - Therapeutic response shortened [Unknown]
  - Dry mouth [Unknown]

NARRATIVE: CASE EVENT DATE: 201801
